FAERS Safety Report 6168902-6 (Version None)
Quarter: 2009Q2

REPORT INFORMATION
  Report Type: 
  Country: None (occurrence: None)
  Receive Date: 20090424
  Receipt Date: 20090424
  Transmission Date: 20091009
  Serious: Yes (Other)
  Sender: FDA-Public Use
  Company Number: None

PATIENT
  Age: 13 Year
  Sex: Female
  Weight: 68.0396 kg

DRUGS (2)
  1. ABILIFY [Suspect]
     Indication: BIPOLAR DISORDER
     Dosage: 2.5MG FOR 3 DAYS DAILY PO 5MG FOR 5 DAYS DAILY PO 3 DAYS THEN OFF ABOUT
     Route: 048
     Dates: start: 20090218, end: 20090223
  2. ABILIFY [Suspect]
     Indication: POST-TRAUMATIC STRESS DISORDER
     Dosage: 2.5MG FOR 3 DAYS DAILY PO 5MG FOR 5 DAYS DAILY PO 3 DAYS THEN OFF ABOUT
     Route: 048
     Dates: start: 20090218, end: 20090223

REACTIONS (2)
  - ACCOMMODATION DISORDER [None]
  - VISION BLURRED [None]
